FAERS Safety Report 8549224-2 (Version None)
Quarter: 2012Q3

REPORT INFORMATION
  Report Type: 
  Country: None (occurrence: None)
  Receive Date: 20120730
  Receipt Date: 20120719
  Transmission Date: 20120928
  Serious: Yes (Other)
  Sender: FDA-Public Use
  Company Number: TH-JNJFOC-20120713024

PATIENT

DRUGS (2)
  1. DARUNAVIR ETHANOLATE [Suspect]
     Indication: HIV INFECTION
     Dosage: (BODY WT. 20-{30 KG,N=12) 375 MG; (WT. 30-{40 KG,N=2) 450 MG; (WT. }=40 KG,N=5) 600 MG
     Route: 048
  2. RITONAVIR [Suspect]
     Indication: HIV INFECTION
     Dosage: (BODY WT. 20-{30 KG,N=12) 100 MG; (WT. 30-{40 KG,N=2) 100 MG; (WT. }=40 KG,N=5) 100 MG
     Route: 065

REACTIONS (2)
  - HYPERCHOLESTEROLAEMIA [None]
  - BRONCHITIS [None]
